FAERS Safety Report 13039295 (Version 1)
Quarter: 2016Q4

REPORT INFORMATION
  Report Type: Spontaneous
  Country: US (occurrence: US)
  Receive Date: 20161216
  Receipt Date: 20161216
  Transmission Date: 20170207
  Serious: Yes (Hospitalization)
  Sender: FDA-Public Use
  Company Number: None

PATIENT
  Age: 76 Year
  Sex: Male
  Weight: 86.4 kg

DRUGS (1)
  1. CYCLOPHOSPHAMIDE. [Suspect]
     Active Substance: CYCLOPHOSPHAMIDE
     Dates: end: 20110620

REACTIONS (9)
  - Diarrhoea [None]
  - Hypovolaemic shock [None]
  - Acute kidney injury [None]
  - Cardiac arrest [None]
  - Dizziness [None]
  - Diarrhoea haemorrhagic [None]
  - Ventricular fibrillation [None]
  - Coronary artery disease [None]
  - Congestive cardiomyopathy [None]

NARRATIVE: CASE EVENT DATE: 20160917
